FAERS Safety Report 13711171 (Version 1)
Quarter: 2017Q3

REPORT INFORMATION
  Report Type: Spontaneous
  Country: US (occurrence: US)
  Receive Date: 20170703
  Receipt Date: 20170703
  Transmission Date: 20171127
  Serious: Yes (Hospitalization)
  Sender: FDA-Public Use
  Company Number: US-MYLANLABS-2017M1038903

PATIENT

DRUGS (3)
  1. IFOSFAMIDE. [Concomitant]
     Active Substance: IFOSFAMIDE
     Indication: INTRACRANIAL GERM CELL TUMOUR
     Route: 065
  2. CISPLATIN. [Suspect]
     Active Substance: CISPLATIN
     Indication: INTRACRANIAL GERM CELL TUMOUR
     Route: 065
  3. TENIPOSIDE. [Concomitant]
     Active Substance: TENIPOSIDE
     Indication: INTRACRANIAL GERM CELL TUMOUR
     Route: 065

REACTIONS (1)
  - Cerebral salt-wasting syndrome [Unknown]
